FAERS Safety Report 9960305 (Version 1)
Quarter: 2014Q1

REPORT INFORMATION
  Report Type: Spontaneous
  Country: US (occurrence: US)
  Receive Date: 20140304
  Receipt Date: 20140304
  Transmission Date: 20141002
  Serious: Yes (Hospitalization)
  Sender: FDA-Public Use
  Company Number: US-GLENMARK GENERICS INC.-2014GMK008735

PATIENT
  Age: 34 Year
  Sex: Male

DRUGS (4)
  1. ZONISAMIDE [Suspect]
     Indication: COMPLEX PARTIAL SEIZURES
     Dosage: 100 MG, HS
  2. ZONISAMIDE [Suspect]
     Dosage: 300 MG, HS
  3. PHENYTOIN [Concomitant]
     Indication: COMPLEX PARTIAL SEIZURES
     Dosage: 300 MG, AM
  4. PHENYTOIN [Concomitant]
     Dosage: 400 MG, HS

REACTIONS (11)
  - Paranoia [Recovered/Resolved]
  - Delusion [Recovered/Resolved]
  - Sleep disorder [Recovered/Resolved]
  - Psychotic disorder [Recovered/Resolved]
  - Gait disturbance [Recovered/Resolved]
  - Palpitations [Recovered/Resolved]
  - Dizziness [Recovered/Resolved]
  - Asthenia [Recovered/Resolved]
  - Disturbance in attention [Recovered/Resolved]
  - Nystagmus [Recovered/Resolved]
  - Hyperreflexia [Recovered/Resolved]
